FAERS Safety Report 5158152-4 (Version None)
Quarter: 2006Q4

REPORT INFORMATION
  Report Type: 
  Country: None (occurrence: None)
  Receive Date: 20061120
  Receipt Date: 20061120
  Transmission Date: 20070319
  Serious: Yes (Other)
  Sender: FDA-Public Use
  Company Number: None

PATIENT
  Age: 47 Year
  Sex: Male
  Weight: 79.3795 kg

DRUGS (1)
  1. MIRTAZAPINE [Suspect]
     Indication: DEPRESSION
     Dosage: 30MG 1/BEDTIME PO
     Route: 048
     Dates: start: 20061109, end: 20061110

REACTIONS (14)
  - AGGRESSION [None]
  - BRADYPHRENIA [None]
  - CONFUSIONAL STATE [None]
  - DEPRESSED MOOD [None]
  - DEPRESSION [None]
  - DISORIENTATION [None]
  - EYELID DISORDER [None]
  - FATIGUE [None]
  - GAIT DISTURBANCE [None]
  - HOSTILITY [None]
  - IRRITABILITY [None]
  - MUSCLE DISORDER [None]
  - SENSATION OF HEAVINESS [None]
  - SOMNOLENCE [None]
